FAERS Safety Report 6267151-0 (Version None)
Quarter: 2009Q3

REPORT INFORMATION
  Report Type: 
  Country: None (occurrence: None)
  Receive Date: 20090714
  Receipt Date: 20080728
  Transmission Date: 20100115
  Serious: No
  Sender: FDA-Public Use
  Company Number: US-ABBOTT-08P-163-0466683-00

PATIENT
  Sex: Male

DRUGS (1)
  1. K-TAB [Suspect]
     Indication: HYPOKALAEMIA
     Route: 048

REACTIONS (1)
  - MEDICATION RESIDUE [None]
